FAERS Safety Report 26138239 (Version 2)
Quarter: 2025Q4

REPORT INFORMATION
  Report Type: Spontaneous
  Country: EU (occurrence: EU)
  Receive Date: 20251210
  Receipt Date: 20251212
  Transmission Date: 20260117
  Serious: Yes (Death, Hospitalization, Other)
  Sender: BOEHRINGER INGELHEIM
  Company Number: EU-BoehringerIngelheim-2025-BI-112195

PATIENT
  Sex: Female

DRUGS (10)
  1. NINTEDANIB [Suspect]
     Active Substance: NINTEDANIB
     Indication: Fibrosis
  2. NINTEDANIB [Suspect]
     Active Substance: NINTEDANIB
     Dates: start: 20251004
  3. PREDNISONE [Concomitant]
     Active Substance: PREDNISONE
     Indication: Product used for unknown indication
  4. PANTOPRAZOLE [Concomitant]
     Active Substance: PANTOPRAZOLE
     Indication: Product used for unknown indication
  5. trimethoprim/sulfomethoxazole 960 [Concomitant]
     Indication: Product used for unknown indication
  6. LEVOTHYROXINE [Concomitant]
     Active Substance: LEVOTHYROXINE
     Indication: Product used for unknown indication
  7. perindopril/amlodipine 5/5 mg [Concomitant]
     Indication: Product used for unknown indication
     Dosage: PERINDOPRIL/AMLODIPINE 5/5 MG 1X1 TBL
  8. BISOPROLOL [Concomitant]
     Active Substance: BISOPROLOL
     Indication: Product used for unknown indication
  9. METFORMIN\SITAGLIPTIN [Concomitant]
     Active Substance: METFORMIN\SITAGLIPTIN
     Indication: Product used for unknown indication
     Dosage: SITAGLIPTIN/METFORMIN 50/1000 MG 2X1 TBL.
  10. CYCLOPHOSPHAMIDE [Concomitant]
     Active Substance: CYCLOPHOSPHAMIDE
     Indication: Idiopathic interstitial pneumonia

REACTIONS (9)
  - Death [Fatal]
  - Disease progression [Unknown]
  - Chronic respiratory failure [Unknown]
  - Liver injury [Unknown]
  - Pneumocystis jirovecii infection [Unknown]
  - Hypersensitivity pneumonitis [Unknown]
  - Interstitial lung disease [Unknown]
  - Interstitial lung disease [Unknown]
  - Lung opacity [Unknown]

NARRATIVE: CASE EVENT DATE: 20251004
